FAERS Safety Report 12972516 (Version 1)
Quarter: 2016Q4

REPORT INFORMATION
  Report Type: Report from Study
  Country: KR (occurrence: KR)
  Receive Date: 20161124
  Receipt Date: 20161124
  Transmission Date: 20170207
  Serious: No
  Sender: FDA-Public Use
  Company Number: KR-PROSTRAKAN-2016-KR-0290

PATIENT

DRUGS (15)
  1. GRANISETRON [Suspect]
     Active Substance: GRANISETRON
     Indication: PROPHYLAXIS OF NAUSEA AND VOMITING
     Dosage: UNKNOWN
     Route: 062
     Dates: start: 20140708, end: 20140712
  2. RENALMIN [Concomitant]
     Indication: RENAL IMPAIRMENT
     Dosage: UNKNOWN
     Route: 065
     Dates: start: 20140708
  3. NORVASC [Concomitant]
     Active Substance: AMLODIPINE BESYLATE
     Indication: HYPERTENSION
     Dosage: UNKNOWN
     Route: 065
  4. SOLONDO [Concomitant]
     Active Substance: PREDNISOLONE
     Indication: DECREASED APPETITE
     Dosage: UNKNOWN
     Route: 065
     Dates: start: 20140708
  5. SYNTHROID [Concomitant]
     Active Substance: LEVOTHYROXINE SODIUM
     Indication: HYPERTHYROIDISM
     Dosage: UNKNOWN
     Route: 065
  6. MUCOTRA [Concomitant]
     Indication: PROPHYLAXIS AGAINST GASTROINTESTINAL ULCER
     Dosage: UNKNOWN
     Route: 065
     Dates: start: 20140708
  7. CYTOTEC [Concomitant]
     Active Substance: MISOPROSTOL
     Indication: GASTRITIS
     Dosage: UNKNOWN
     Route: 065
     Dates: start: 20140708, end: 20140711
  8. TAZOLACTAM [Concomitant]
     Indication: ANTIBIOTIC THERAPY
     Dosage: UNKNOWN
     Route: 065
     Dates: start: 20140708
  9. EPS [Concomitant]
     Indication: PRODUCT USED FOR UNKNOWN INDICATION
     Dosage: UNKNOWN
     Route: 065
     Dates: start: 20140709, end: 20140711
  10. CISPLAN [Concomitant]
     Active Substance: CISPLATIN
     Indication: PRODUCT USED FOR UNKNOWN INDICATION
     Dosage: UNKNOWN
     Route: 065
     Dates: start: 20140709, end: 20140711
  11. EMEND [Concomitant]
     Active Substance: APREPITANT
     Indication: PRODUCT USED FOR UNKNOWN INDICATION
     Dosage: UNKNOWN
     Route: 065
     Dates: start: 20140709, end: 20140709
  12. LASIX [Concomitant]
     Active Substance: FUROSEMIDE
     Indication: HYPERTENSION
     Dosage: UNKNOWN
     Route: 065
     Dates: start: 20140708
  13. DEXAMETHASONE. [Concomitant]
     Active Substance: DEXAMETHASONE
     Indication: PRODUCT USED FOR UNKNOWN INDICATION
     Dosage: UNKNOWN
     Route: 065
     Dates: start: 20140709, end: 20140711
  14. TASNA [Concomitant]
     Indication: RENAL IMPAIRMENT
     Dosage: UNKNOWN
     Route: 065
     Dates: start: 20140708
  15. HARNAL [Concomitant]
     Active Substance: TAMSULOSIN HYDROCHLORIDE
     Indication: PROSTATISM
     Dosage: UNKNOWN
     Route: 065
     Dates: start: 20140708

REACTIONS (1)
  - Nausea [Recovered/Resolved]

NARRATIVE: CASE EVENT DATE: 20140712
